FAERS Safety Report 8309677-1 (Version None)
Quarter: 2012Q2

REPORT INFORMATION
  Report Type: 
  Country: None (occurrence: None)
  Receive Date: 20120425
  Receipt Date: 20120416
  Transmission Date: 20120825
  Serious: Yes (Death, Other)
  Sender: FDA-Public Use
  Company Number: IN-GENZYME-CERZ-1002470

PATIENT
  Sex: Male

DRUGS (1)
  1. CEREZYME [Suspect]
     Indication: GAUCHER'S DISEASE
     Dosage: 1200 U, Q4W
     Route: 042
     Dates: start: 20101201

REACTIONS (3)
  - PULMONARY SEPSIS [None]
  - FEBRILE NEUTROPENIA [None]
  - PANCYTOPENIA [None]
